FAERS Safety Report 5338975-9 (Version None)
Quarter: 2007Q2

REPORT INFORMATION
  Report Type: 
  Country: None (occurrence: None)
  Receive Date: 20070404
  Receipt Date: 20061206
  Transmission Date: 20071010
  Serious: Yes (Other)
  Sender: FDA-Public Use
  Company Number: HQWYE704408DEC06

PATIENT
  Age: 45 Year
  Sex: Female
  Weight: 65.83 kg

DRUGS (1)
  1. ALAVERT [Suspect]
     Indication: EAR DISCOMFORT
     Dosage: 1 TABLET X 1, ORAL
     Route: 048
     Dates: start: 20061202, end: 20061202

REACTIONS (2)
  - DISTURBANCE IN ATTENTION [None]
  - HEART RATE INCREASED [None]
